FAERS Safety Report 11781540 (Version 2)
Quarter: 2015Q4

REPORT INFORMATION
  Report Type: Spontaneous
  Country: CH (occurrence: CH)
  Receive Date: 20151126
  Receipt Date: 20151127
  Transmission Date: 20160305
  Serious: Yes (Other)
  Sender: FDA-Public Use
  Company Number: PHHY2015CH150862

PATIENT
  Age: 11 Year
  Sex: Male

DRUGS (4)
  1. ANAKINRA [Concomitant]
     Active Substance: ANAKINRA
     Indication: PERICARDITIS
     Dosage: UNK
  2. ACZ885 [Suspect]
     Active Substance: CANAKINUMAB
     Dosage: 4 MG/KG, UNK
     Route: 065
  3. PREDNISONE. [Concomitant]
     Active Substance: PREDNISONE
     Indication: PERICARDITIS
     Route: 065
  4. ACZ885 [Suspect]
     Active Substance: CANAKINUMAB
     Indication: PERICARDITIS
     Dosage: UNK
     Route: 065

REACTIONS (2)
  - Drug ineffective for unapproved indication [Unknown]
  - Pericarditis [Recovering/Resolving]
